FAERS Safety Report 20667139 (Version 2)
Quarter: 2022Q2

REPORT INFORMATION
  Report Type: Spontaneous
  Country: US (occurrence: US)
  Receive Date: 20220404
  Receipt Date: 20220427
  Transmission Date: 20220721
  Serious: No
  Sender: FDA-Public Use
  Company Number: US-drreddys-SPO/USA/22/0148400

PATIENT
  Age: 39 Year
  Sex: Female

DRUGS (5)
  1. CARVEDILOL [Suspect]
     Active Substance: CARVEDILOL
     Indication: Peripartum cardiomyopathy
     Dates: start: 200802, end: 2008
  2. DIGOXIN [Concomitant]
     Active Substance: DIGOXIN
     Indication: Peripartum cardiomyopathy
     Dates: start: 1997
  3. WARFARIN [Concomitant]
     Active Substance: WARFARIN
     Indication: Peripartum cardiomyopathy
     Dates: start: 1997
  4. ENALAPRIL [Concomitant]
     Active Substance: ENALAPRIL
     Indication: Peripartum cardiomyopathy
     Dates: start: 1997
  5. FUROSEMIDE [Concomitant]
     Active Substance: FUROSEMIDE
     Indication: Peripartum cardiomyopathy
     Dates: start: 1997

REACTIONS (1)
  - Fatigue [Unknown]

NARRATIVE: CASE EVENT DATE: 20080101
